FAERS Safety Report 25118431 (Version 1)
Quarter: 2025Q1

REPORT INFORMATION
  Report Type: Spontaneous
  Country: US (occurrence: US)
  Receive Date: 20250325
  Receipt Date: 20250325
  Transmission Date: 20250409
  Serious: No
  Sender: BAYER HEALTHCARE PHARMACEUTICALS INC.
  Company Number: US-BAYER-2025A037770

PATIENT
  Age: 56 Year
  Sex: Female

DRUGS (3)
  1. ESTRADIOL [Suspect]
     Active Substance: ESTRADIOL
     Route: 062
  2. MAGNESIUM [Concomitant]
     Active Substance: MAGNESIUM
  3. GLYCINE [Concomitant]
     Active Substance: GLYCINE

REACTIONS (5)
  - Blood oestrogen abnormal [None]
  - Pain in extremity [None]
  - Muscle spasms [None]
  - Device adhesion issue [None]
  - Product physical issue [None]
